FAERS Safety Report 10983970 (Version 1)
Quarter: 2015Q2

REPORT INFORMATION
  Report Type: Spontaneous
  Country: CN (occurrence: None)
  Receive Date: 20150401
  Receipt Date: 20150401
  Transmission Date: 20150821
  Serious: Yes (Hospitalization)
  Sender: FDA-Public Use
  Company Number: NSR_02018_2015

PATIENT
  Age: 49 Year
  Sex: Male

DRUGS (4)
  1. AMLODIPINE [Concomitant]
     Active Substance: AMLODIPINE BESYLATE
  2. VALSARTAN. [Concomitant]
     Active Substance: VALSARTAN
  3. ALLOPURINOL (ALLOPURINOL) [Suspect]
     Active Substance: ALLOPURINOL
     Indication: CHRONIC KIDNEY DISEASE
     Dosage: DF
  4. CHINESE MEDICINES [Concomitant]

REACTIONS (10)
  - Skin exfoliation [None]
  - Pyrexia [None]
  - Face oedema [None]
  - Leukocytosis [None]
  - Blood creatinine increased [None]
  - Blood albumin decreased [None]
  - Red blood cell count decreased [None]
  - Pruritus generalised [None]
  - Alanine aminotransferase increased [None]
  - Erythema [None]
